FAERS Safety Report 18628046 (Version 1)
Quarter: 2020Q4

REPORT INFORMATION
  Report Type: Spontaneous
  Country: US (occurrence: US)
  Receive Date: 20201217
  Receipt Date: 20201217
  Transmission Date: 20210114
  Serious: No
  Sender: FDA-Public Use
  Company Number: US-009507513-2012USA006392

PATIENT
  Age: 33 Year
  Sex: Female

DRUGS (1)
  1. NEXPLANON [Suspect]
     Active Substance: ETONOGESTREL
     Dosage: 68 MILLIGRAM (1 IMPLANT), EVERY 3 YEARS
     Route: 059
     Dates: start: 202005

REACTIONS (2)
  - Menstruation irregular [Unknown]
  - Menstruation irregular [Unknown]

NARRATIVE: CASE EVENT DATE: 202008
